FAERS Safety Report 7827842-4 (Version None)
Quarter: 2011Q4

REPORT INFORMATION
  Report Type: 
  Country: None (occurrence: None)
  Receive Date: 20111017
  Receipt Date: 20111006
  Transmission Date: 20120403
  Serious: Yes (Death)
  Sender: FDA-Public Use
  Company Number: 2011100045

PATIENT
  Age: 63 Year
  Sex: Male

DRUGS (2)
  1. OXYCONTIN [Concomitant]
  2. ONSOLIS [Suspect]
     Indication: CANCER PAIN
     Dosage: TO BE TITRATED UP TO 4-200 MCG FILMS (200 MCG,UP TO 4 TIMES DAILY),BU
     Route: 002
     Dates: start: 20100218

REACTIONS (1)
  - DEATH [None]
